FAERS Safety Report 6499012-6 (Version None)
Quarter: 2009Q4

REPORT INFORMATION
  Report Type: 
  Country: None (occurrence: None)
  Receive Date: 20091215
  Receipt Date: 20091201
  Transmission Date: 20100525
  Serious: Yes (Hospitalization)
  Sender: FDA-Public Use
  Company Number: US-MYLANLABS-2009S1020694

PATIENT
  Age: 77 Year
  Sex: Male

DRUGS (1)
  1. NITROFURANTOIN [Suspect]
     Indication: ANTIBIOTIC PROPHYLAXIS
     Dosage: 100MG DAILY

REACTIONS (1)
  - SYSTEMIC INFLAMMATORY RESPONSE SYNDROME [None]
